FAERS Safety Report 11755511 (Version 1)
Quarter: 2015Q4

REPORT INFORMATION
  Report Type: Report from Study
  Country: CA (occurrence: CA)
  Receive Date: 20151119
  Receipt Date: 20151119
  Transmission Date: 20160304
  Serious: Yes (Other)
  Sender: FDA-Public Use
  Company Number: CA-GILEAD-2015-0177238

PATIENT
  Age: 68 Year
  Sex: Male

DRUGS (11)
  1. HYDROCODONE [Concomitant]
     Active Substance: HYDROCODONE
  2. OLANZAPINE. [Concomitant]
     Active Substance: OLANZAPINE
  3. RESTORALAX [Concomitant]
     Active Substance: POLYETHYLENE GLYCOL 3350
  4. HALOPERIDOL. [Concomitant]
     Active Substance: HALOPERIDOL
  5. HYDROMORPH [Concomitant]
     Active Substance: HYDROMORPHONE
  6. RANITIDINE [Concomitant]
     Active Substance: RANITIDINE\RANITIDINE HYDROCHLORIDE
  7. IDELALISIB [Suspect]
     Active Substance: IDELALISIB
     Indication: NON-HODGKIN^S LYMPHOMA UNSPECIFIED HISTOLOGY INDOLENT
     Dosage: 150 MG, BID
     Route: 048
     Dates: start: 20150918, end: 20151112
  8. ALFUZOSIN [Concomitant]
     Active Substance: ALFUZOSIN
  9. SENNOSIDES A+B [Concomitant]
     Active Substance: SENNOSIDES A AND B
  10. VITAMIN B12                        /07503801/ [Concomitant]
  11. BISACODYL. [Concomitant]
     Active Substance: BISACODYL

REACTIONS (7)
  - Pneumonia [Unknown]
  - Drug ineffective [Unknown]
  - General physical health deterioration [Unknown]
  - Lymphadenopathy [Unknown]
  - Cough [Unknown]
  - Skin mass [Unknown]
  - Hepatic neoplasm [Unknown]
